FAERS Safety Report 5877769-2 (Version None)
Quarter: 2008Q3

REPORT INFORMATION
  Report Type: 
  Country: None (occurrence: None)
  Receive Date: 20080911
  Receipt Date: 20080902
  Transmission Date: 20090109
  Serious: Yes (Other)
  Sender: FDA-Public Use
  Company Number: US-NOVOPROD-278933

PATIENT
  Age: 74 Year
  Sex: Male

DRUGS (1)
  1. LEVEMIR [Suspect]
     Indication: INSULIN-REQUIRING TYPE 2 DIABETES MELLITUS
     Route: 058
     Dates: start: 20080826, end: 20080827

REACTIONS (7)
  - BLOOD GLUCOSE INCREASED [None]
  - CONSTIPATION [None]
  - DIARRHOEA [None]
  - DIZZINESS [None]
  - LOSS OF CONSCIOUSNESS [None]
  - MALAISE [None]
  - SOMNOLENCE [None]
